FAERS Safety Report 7621990-X (Version None)
Quarter: 2011Q3

REPORT INFORMATION
  Report Type: 
  Country: None (occurrence: None)
  Receive Date: 20110720
  Receipt Date: 20110526
  Transmission Date: 20111222
  Serious: Yes (Other)
  Sender: FDA-Public Use
  Company Number: IT-BAYER-2011-045627

PATIENT
  Age: 49 Year
  Sex: Female

DRUGS (1)
  1. ASPIRIN [Suspect]
     Indication: HEADACHE
     Dosage: UNK
     Dates: start: 20110514, end: 20110514

REACTIONS (4)
  - URTICARIA [None]
  - DYSPNOEA [None]
  - LIP OEDEMA [None]
  - LARYNGEAL OEDEMA [None]
